FAERS Safety Report 7638362-4 (Version None)
Quarter: 2011Q3

REPORT INFORMATION
  Report Type: 
  Country: None (occurrence: None)
  Receive Date: 20110720
  Receipt Date: 20110707
  Transmission Date: 20111222
  Serious: Yes (Other)
  Sender: FDA-Public Use
  Company Number: 2011AP001429

PATIENT
  Age: 61 Year
  Sex: Female

DRUGS (4)
  1. TACROLIMUS [Concomitant]
  2. MYCOPHENOLATE MOFETIL [Suspect]
     Indication: IMMUNOSUPPRESSANT DRUG THERAPY
     Dosage: 2 G; QD
     Dates: start: 20050201
  3. CYCLOSPORINE [Concomitant]
  4. PREDNISOLONE [Concomitant]

REACTIONS (4)
  - BRONCHIECTASIS [None]
  - HYPOGAMMAGLOBULINAEMIA [None]
  - RENAL TRANSPLANT [None]
  - SURGICAL PROCEDURE REPEATED [None]
